FAERS Safety Report 13832947 (Version 2)
Quarter: 2017Q3

REPORT INFORMATION
  Report Type: Spontaneous
  Country: IL (occurrence: IL)
  Receive Date: 20170803
  Receipt Date: 20170811
  Transmission Date: 20171127
  Serious: Yes (Hospitalization)
  Sender: FDA-Public Use
  Company Number: IL-ABBVIE-17P-082-2038767-00

PATIENT
  Age: 70 Year
  Sex: Female
  Weight: 62 kg

DRUGS (1)
  1. VENETOCLAX. [Suspect]
     Active Substance: VENETOCLAX
     Indication: CHRONIC LYMPHOCYTIC LEUKAEMIA
     Route: 048
     Dates: start: 20170528

REACTIONS (6)
  - Neutropenia [Recovered/Resolved]
  - Splenomegaly [Recovering/Resolving]
  - Infection [Recovering/Resolving]
  - Lymphadenopathy [Unknown]
  - Cough [Unknown]
  - Lymphadenitis [Recovering/Resolving]

NARRATIVE: CASE EVENT DATE: 201707
